FAERS Safety Report 8369309-3 (Version None)
Quarter: 2012Q2

REPORT INFORMATION
  Report Type: 
  Country: None (occurrence: None)
  Receive Date: 20120518
  Receipt Date: 20120514
  Transmission Date: 20120825
  Serious: Yes (Death, Other)
  Sender: FDA-Public Use
  Company Number: PHHY2012JP039193

PATIENT
  Age: 67 Year
  Sex: Male

DRUGS (1)
  1. NEORAL [Suspect]
     Indication: RASH
     Dosage: UNK UKN, UNK
     Route: 048

REACTIONS (13)
  - BACTERAEMIA [None]
  - PYREXIA [None]
  - ARTERIAL RUPTURE [None]
  - DISSEMINATED INTRAVASCULAR COAGULATION [None]
  - PURULENT DISCHARGE [None]
  - MALAISE [None]
  - WOUND [None]
  - HAEMORRHAGE [None]
  - STAPHYLOCOCCAL INFECTION [None]
  - PSEUDOMONAS INFECTION [None]
  - DECREASED APPETITE [None]
  - URINARY TRACT INFECTION [None]
  - SERRATIA INFECTION [None]
